FAERS Safety Report 4871810-1 (Version None)
Quarter: 2006Q1

REPORT INFORMATION
  Report Type: 
  Country: None (occurrence: None)
  Receive Date: 20060104
  Receipt Date: 20051223
  Transmission Date: 20060701
  Serious: Yes (Life-Threatening, Other)
  Sender: FDA-Public Use
  Company Number: GB-GLAXOSMITHKLINE-B0405197A

PATIENT
  Age: 29 Year
  Sex: Female

DRUGS (5)
  1. ZIDOVUDINE [Suspect]
     Indication: ANTIVIRAL PROPHYLAXIS
     Dosage: 250MG PER DAY
     Route: 048
     Dates: start: 20051205, end: 20051213
  2. LAMIVUDINE [Suspect]
     Indication: ANTIVIRAL PROPHYLAXIS
     Dosage: 150MG PER DAY
     Route: 048
     Dates: start: 20051205, end: 20051213
  3. NELFINAVIR [Suspect]
     Indication: ANTIVIRAL PROPHYLAXIS
     Dosage: 1250MG PER DAY
     Route: 048
     Dates: start: 20051205, end: 20051213
  4. LOPERAMIDE [Concomitant]
     Dosage: 2MG PER DAY
     Route: 048
     Dates: start: 20051205, end: 20051213
  5. DOMPERIDONE [Concomitant]
     Dosage: 10MG PER DAY
     Route: 048
     Dates: start: 20051205, end: 20051213

REACTIONS (3)
  - CHEST DISCOMFORT [None]
  - RASH [None]
  - THROAT TIGHTNESS [None]
